FAERS Safety Report 6695239-9 (Version None)
Quarter: 2010Q2

REPORT INFORMATION
  Report Type: 
  Country: None (occurrence: None)
  Receive Date: 20100423
  Receipt Date: 20100411
  Transmission Date: 20101027
  Serious: Yes (Hospitalization)
  Sender: FDA-Public Use
  Company Number: CA-ELI_LILLY_AND_COMPANY-CA201004002981

PATIENT
  Age: 79 Year
  Sex: Female

DRUGS (11)
  1. FORTEO [Suspect]
     Indication: OSTEOPOROSIS
     Dosage: 20 UG, DAILY (1/D)
     Dates: start: 20091214, end: 20100417
  2. ARTHROTEC [Concomitant]
  3. FUROSEMIDE [Concomitant]
     Indication: OEDEMA PERIPHERAL
     Dosage: 40 MG, AS NEEDED
     Dates: start: 20100401
  4. OXYCODONE HCL AND ACETAMINOPHEN [Concomitant]
  5. OXYCONTIN [Concomitant]
  6. LAPRAZOL [Concomitant]
  7. SYNTHROID [Concomitant]
  8. AMILORID [Concomitant]
  9. METHYLDOPA [Concomitant]
  10. VENTOLIN [Concomitant]
     Dosage: UNK, AS NEEDED
  11. ADVAIR DISKUS 100/50 [Concomitant]
     Dosage: UNK, AS NEEDED

REACTIONS (9)
  - BLOOD POTASSIUM INCREASED [None]
  - BLOOD PRESSURE INCREASED [None]
  - BLOOD SODIUM DECREASED [None]
  - CARDIAC ENZYMES INCREASED [None]
  - GAIT DISTURBANCE [None]
  - HAEMOGLOBIN DECREASED [None]
  - LYMPHOCYTE COUNT ABNORMAL [None]
  - OEDEMA PERIPHERAL [None]
  - WEIGHT INCREASED [None]
